FAERS Safety Report 6509341-5 (Version None)
Quarter: 2009Q4

REPORT INFORMATION
  Report Type: 
  Country: None (occurrence: None)
  Receive Date: 20091218
  Receipt Date: 20091218
  Transmission Date: 20100525
  Serious: No
  Sender: FDA-Public Use
  Company Number: None

PATIENT
  Age: 72 Year
  Sex: Female
  Weight: 63.5036 kg

DRUGS (1)
  1. UNISOM [Suspect]
     Indication: SLEEP DISORDER THERAPY
     Dosage: ONE TADLET BEFORE BED PO
     Route: 048
     Dates: start: 20091215, end: 20091215

REACTIONS (1)
  - RASH ERYTHEMATOUS [None]
